FAERS Safety Report 17158477 (Version 2)
Quarter: 2020Q1

REPORT INFORMATION
  Report Type: Spontaneous
  Country: US (occurrence: US)
  Receive Date: 20191216
  Receipt Date: 20200309
  Transmission Date: 20200409
  Serious: No
  Sender: FDA-Public Use
  Company Number: US-PFIZER INC-2019540104

PATIENT
  Age: 61 Year
  Sex: Male

DRUGS (1)
  1. CAVERJECT [Suspect]
     Active Substance: ALPROSTADIL
     Dosage: 20 UG, DAILY [1 APPLICATOR INTRACAVERNOSAL DAILY AS DIRECTED]
     Route: 017

REACTIONS (1)
  - Hypertonic bladder [Unknown]
